FAERS Safety Report 6824258-4 (Version None)
Quarter: 2010Q3

REPORT INFORMATION
  Report Type: 
  Country: None (occurrence: None)
  Receive Date: 20100708
  Receipt Date: 20100701
  Transmission Date: 20110219
  Serious: Yes (Death, Other)
  Sender: FDA-Public Use
  Company Number: US-AMGEN-QUU418460

PATIENT
  Sex: Male

DRUGS (4)
  1. NPLATE [Suspect]
     Indication: IDIOPATHIC THROMBOCYTOPENIC PURPURA
     Dates: start: 20090619, end: 20100112
  2. AZATHIOPRINE [Concomitant]
  3. DANAZOL [Concomitant]
  4. RITUXIMAB [Concomitant]

REACTIONS (4)
  - ACUTE RESPIRATORY FAILURE [None]
  - CARDIAC FAILURE CONGESTIVE [None]
  - RENAL FAILURE ACUTE [None]
  - THERAPEUTIC RESPONSE DECREASED [None]
